FAERS Safety Report 17414884 (Version 1)
Quarter: 2020Q1

REPORT INFORMATION
  Report Type: Spontaneous
  Country: GB (occurrence: GB)
  Receive Date: 20200213
  Receipt Date: 20200213
  Transmission Date: 20200409
  Serious: Yes (Other)
  Sender: FDA-Public Use
  Company Number: GB-PFIZER INC-2020059579

PATIENT
  Age: 54 Year
  Sex: Female
  Weight: 65 kg

DRUGS (2)
  1. IBUPROFEN. [Suspect]
     Active Substance: IBUPROFEN
     Indication: GASTRIC ULCER
     Dosage: 400 MG, UNK
     Route: 048
  2. OMEPRAZOLE. [Concomitant]
     Active Substance: OMEPRAZOLE
     Dosage: 80 MG, 1X/DAY
     Dates: start: 20200113

REACTIONS (2)
  - Gastric ulcer [Recovering/Resolving]
  - Helicobacter test negative [Unknown]

NARRATIVE: CASE EVENT DATE: 20190801
